FAERS Safety Report 9565599 (Version 2)
Quarter: 2013Q3

REPORT INFORMATION
  Report Type: Spontaneous
  Country: US (occurrence: US)
  Receive Date: 20130930
  Receipt Date: 20130930
  Transmission Date: 20140515
  Serious: No
  Sender: FDA-Public Use
  Company Number: US-COVIDIEN/TYCO HEALTHCARE/MALLINCKRODT-T201304256

PATIENT
  Age: 22 Year
  Sex: Female

DRUGS (4)
  1. METHYLPHENIDATE HYDROCHLORIDE EXTENDED RELEASE TABLETS [Suspect]
     Indication: PRODUCT USED FOR UNKNOWN INDICATION
     Dosage: 54 MG AT 3AM QD
     Route: 048
     Dates: start: 20130802, end: 2013
  2. METHYLPHENIDATE HYDROCHLORIDE EXTENDED RELEASE TABLETS [Suspect]
     Dosage: 36 MG AT 8AM QD
     Route: 048
     Dates: start: 20130802, end: 2013
  3. METHYLPHENIDATE [Suspect]
     Indication: PRODUCT USED FOR UNKNOWN INDICATION
     Dosage: 18 MG AT 2PM QD
  4. METHYLPHENIDATE [Suspect]
     Dosage: 18 MG AT 8PM QD

REACTIONS (2)
  - Hypersomnia [Unknown]
  - Drug effect decreased [Unknown]
